FAERS Safety Report 17372547 (Version 1)
Quarter: 2020Q1

REPORT INFORMATION
  Report Type: Report from Study
  Country: None (occurrence: CA)
  Receive Date: 20200205
  Receipt Date: 20200205
  Transmission Date: 20200409
  Serious: Yes (Hospitalization, Other)
  Sender: FDA-Public Use
  Company Number: CA-ABBVIE-20K-028-3262057-00

PATIENT
  Age: 29 Year
  Sex: Female

DRUGS (2)
  1. HUMIRA [Suspect]
     Active Substance: ADALIMUMAB
     Indication: RHEUMATOID ARTHRITIS
     Route: 058
     Dates: start: 20190822, end: 201912
  2. HUMIRA [Suspect]
     Active Substance: ADALIMUMAB
     Route: 058
     Dates: start: 202001

REACTIONS (10)
  - Vagus nerve disorder [Not Recovered/Not Resolved]
  - Loss of consciousness [Recovered/Resolved]
  - Arthritis [Unknown]
  - Chronic sinusitis [Not Recovered/Not Resolved]
  - Nausea [Unknown]
  - Unevaluable event [Unknown]
  - Unevaluable event [Unknown]
  - Impaired gastric emptying [Unknown]
  - Memory impairment [Not Recovered/Not Resolved]
  - Vomiting [Unknown]

NARRATIVE: CASE EVENT DATE: 201912
